FAERS Safety Report 7518842-2 (Version None)
Quarter: 2011Q2

REPORT INFORMATION
  Report Type: 
  Country: None (occurrence: None)
  Receive Date: 20110602
  Receipt Date: 20110531
  Transmission Date: 20111010
  Serious: No
  Sender: FDA-Public Use
  Company Number: US-PFIZER INC-2011118040

PATIENT
  Sex: Female
  Weight: 56.689 kg

DRUGS (3)
  1. CHANTIX [Suspect]
     Indication: SMOKING CESSATION THERAPY
     Dosage: 0.5 MG, DAILY
     Route: 048
     Dates: start: 20110526, end: 20110529
  2. SEMPREX-D [Concomitant]
     Indication: SINUSITIS
     Dosage: DAILY
     Route: 048
  3. COMBIVENT [Concomitant]
     Indication: LUNG DISORDER
     Dosage: EVERY FOUR TO SIX HOURS

REACTIONS (3)
  - ABDOMINAL PAIN UPPER [None]
  - SINUSITIS [None]
  - MALAISE [None]
